FAERS Safety Report 18467903 (Version 1)
Quarter: 2020Q4

REPORT INFORMATION
  Report Type: Spontaneous
  Country: US (occurrence: US)
  Receive Date: 20201105
  Receipt Date: 20201105
  Transmission Date: 20210114
  Serious: Yes (Life-Threatening)
  Sender: FDA-Public Use
  Company Number: US-BAYER-2020-236538

PATIENT
  Age: 77 Year
  Sex: Male

DRUGS (1)
  1. ACETYLSALICYLIC ACID [Suspect]
     Active Substance: ASPIRIN
     Indication: ATRIAL FIBRILLATION
     Dosage: UNK

REACTIONS (6)
  - Haemoglobin decreased [None]
  - Shock haemorrhagic [None]
  - Subcapsular renal haematoma [None]
  - Retroperitoneal haematoma [None]
  - Acute kidney injury [None]
  - Platelet dysfunction [None]
